FAERS Safety Report 6574317-9 (Version None)
Quarter: 2010Q1

REPORT INFORMATION
  Report Type: 
  Country: None (occurrence: None)
  Receive Date: 20100208
  Receipt Date: 20100129
  Transmission Date: 20100710
  Serious: Yes (Hospitalization, Other)
  Sender: FDA-Public Use
  Company Number: BR-ABBOTT-10P-020-0623082-00

PATIENT
  Sex: Female
  Weight: 62 kg

DRUGS (1)
  1. HUMIRA [Suspect]
     Indication: RHEUMATOID ARTHRITIS
     Dates: start: 20090101

REACTIONS (5)
  - CARDIAC DISORDER [None]
  - ILEUS PARALYTIC [None]
  - KNEE OPERATION [None]
  - RENAL IMPAIRMENT [None]
  - SUTURE RELATED COMPLICATION [None]
